FAERS Safety Report 24181242 (Version 1)
Quarter: 2024Q3

REPORT INFORMATION
  Report Type: Report from Study
  Country: AR (occurrence: AR)
  Receive Date: 20240806
  Receipt Date: 20240806
  Transmission Date: 20241017
  Serious: Yes (Hospitalization, Other)
  Sender: NOVARTIS
  Company Number: AR-002147023-NVSC2024AR125480

PATIENT
  Age: 77 Year
  Sex: Female

DRUGS (6)
  1. KISQALI [Suspect]
     Active Substance: RIBOCICLIB
     Indication: Breast cancer metastatic
     Dosage: 600 MG, QD (3 TABLETS OF 200MG IN ONE SINGLE INTAKE: 600MG DAILY)
     Route: 065
     Dates: start: 20190101
  2. KISQALI [Suspect]
     Active Substance: RIBOCICLIB
     Dosage: 200 MG, BID (400MG A DAY (2 DAILY TABLETS OF 200MG IN ONE SINGLE INTAKE)
     Route: 065
  3. KISQALI [Suspect]
     Active Substance: RIBOCICLIB
     Dosage: UNK
     Route: 065
  4. LETROZOLE [Suspect]
     Active Substance: LETROZOLE
     Indication: Breast cancer metastatic
     Dosage: UNK, QD
     Route: 048
     Dates: start: 20190101
  5. ESCITALOPRAM OXALATE [Concomitant]
     Active Substance: ESCITALOPRAM OXALATE
     Indication: Depression
     Dosage: UNK
     Route: 065
  6. NIDIB [Concomitant]
     Indication: Hypertension
     Dosage: UNK
     Route: 065

REACTIONS (21)
  - Pneumonia [Not Recovered/Not Resolved]
  - Pulmonary congestion [Unknown]
  - Productive cough [Unknown]
  - Bronchitis [Not Recovered/Not Resolved]
  - Disease recurrence [Not Recovered/Not Resolved]
  - Condition aggravated [Not Recovered/Not Resolved]
  - Dyspnoea [Unknown]
  - Metastases to lung [Unknown]
  - Metastases to central nervous system [Unknown]
  - Hallucination, visual [Unknown]
  - Posture abnormal [Unknown]
  - Disorientation [Unknown]
  - Fall [Unknown]
  - Mood altered [Unknown]
  - Head injury [Unknown]
  - Red blood cell count decreased [Unknown]
  - White blood cell count decreased [Unknown]
  - Decreased immune responsiveness [Unknown]
  - Mobility decreased [Unknown]
  - Gait inability [Unknown]
  - Therapeutic product effect decreased [Unknown]

NARRATIVE: CASE EVENT DATE: 20240201
